FAERS Safety Report 6879980-0 (Version None)
Quarter: 2010Q3

REPORT INFORMATION
  Report Type: 
  Country: None (occurrence: None)
  Receive Date: 20100728
  Receipt Date: 20100716
  Transmission Date: 20110219
  Serious: Yes (Other)
  Sender: FDA-Public Use
  Company Number: PHFR2010GB01369

PATIENT
  Sex: Female

DRUGS (1)
  1. CLOZARIL [Suspect]
     Indication: SCHIZOPHRENIA
     Dosage: UNK
     Dates: start: 20030313

REACTIONS (4)
  - DRUG DOSE OMISSION [None]
  - GASTRIC BYPASS [None]
  - OBESITY [None]
  - SLEEP APNOEA SYNDROME [None]
